FAERS Safety Report 9112552 (Version 5)
Quarter: 2014Q1

REPORT INFORMATION
  Report Type: Spontaneous
  Country: US (occurrence: US)
  Receive Date: 20130211
  Receipt Date: 20140304
  Transmission Date: 20141002
  Serious: Yes (Hospitalization, Other)
  Sender: FDA-Public Use
  Company Number: US-009507513-1302USA004241

PATIENT
  Sex: Female
  Weight: 99.77 kg

DRUGS (7)
  1. FOSAMAX [Suspect]
     Indication: OSTEOPOROSIS
     Dosage: 10 MG, UNK
     Route: 048
     Dates: start: 20000503, end: 20001121
  2. FOSAMAX [Suspect]
     Dosage: 70 MG, UNK
     Route: 048
     Dates: start: 20001218, end: 20071114
  3. FOSAMAX [Suspect]
     Dosage: 70 MG, UNK
     Route: 048
     Dates: start: 20071211, end: 20080225
  4. ALENDRONATE SODIUM [Suspect]
     Indication: OSTEOPOROSIS
     Dosage: 70 MG, UNK
     Route: 048
     Dates: start: 20080328, end: 20120320
  5. METHOTREXATE [Concomitant]
     Indication: RHEUMATOID ARTHRITIS
     Dosage: UNK
     Dates: start: 1997, end: 2000
  6. FUROSEMIDE [Concomitant]
     Dosage: UNK
     Dates: start: 1998
  7. PROZAC [Concomitant]
     Dosage: UNK
     Dates: start: 1999

REACTIONS (32)
  - Femur fracture [Unknown]
  - Intramedullary rod insertion [Unknown]
  - Breast cancer recurrent [Unknown]
  - Renal failure chronic [Not Recovered/Not Resolved]
  - Anaemia postoperative [Unknown]
  - Sepsis [Unknown]
  - Iron deficiency anaemia [Not Recovered/Not Resolved]
  - Polyp [Unknown]
  - Cellulitis [Unknown]
  - Peptic ulcer [Unknown]
  - Osteoarthritis [Unknown]
  - Hypoaesthesia [Unknown]
  - Dyspnoea exertional [Unknown]
  - Blood albumin decreased [Unknown]
  - Hiatus hernia [Unknown]
  - Fibromyalgia [Unknown]
  - Osteoarthritis [Unknown]
  - Urinary tract infection [Unknown]
  - Diverticulum [Unknown]
  - Hepatic cyst [Unknown]
  - Renal cyst [Unknown]
  - Diverticulitis [Unknown]
  - Oophorectomy bilateral [Unknown]
  - Ovarian cyst [Unknown]
  - Impaired healing [Unknown]
  - Pain [Not Recovered/Not Resolved]
  - Joint effusion [Unknown]
  - Injury [Unknown]
  - Blood calcium decreased [Unknown]
  - Oedema peripheral [Unknown]
  - Gastrooesophageal reflux disease [Unknown]
  - Constipation [Unknown]
